FAERS Safety Report 7782753-8 (Version None)
Quarter: 2011Q3

REPORT INFORMATION
  Report Type: 
  Country: None (occurrence: None)
  Receive Date: 20110928
  Receipt Date: 20110922
  Transmission Date: 20111222
  Serious: Yes (Death)
  Sender: FDA-Public Use
  Company Number: US-PFIZER INC-2011226542

PATIENT
  Sex: Male

DRUGS (1)
  1. REVATIO [Suspect]
     Indication: FALLOT'S TETRALOGY
     Dosage: 20 MG, 3X/DAY

REACTIONS (1)
  - DEATH [None]
